FAERS Safety Report 14535105 (Version 1)
Quarter: 2018Q1

REPORT INFORMATION
  Report Type: Spontaneous
  Country: AT (occurrence: AT)
  Receive Date: 20180215
  Receipt Date: 20180215
  Transmission Date: 20180509
  Serious: Yes (Hospitalization, Other)
  Sender: FDA-Public Use
  Company Number: AT-TEVA-670227ISR

PATIENT
  Age: 25 Year
  Sex: Female
  Weight: 76.5 kg

DRUGS (13)
  1. PRAXITEN [Concomitant]
     Active Substance: OXAZEPAM
     Dosage: 7.5-30MG
     Route: 048
     Dates: start: 20150426, end: 20150503
  2. IBUPROFEN. [Concomitant]
     Active Substance: IBUPROFEN
     Route: 048
     Dates: start: 20150508, end: 20150508
  3. SERTRALINE [Suspect]
     Active Substance: SERTRALINE HYDROCHLORIDE
     Route: 048
     Dates: start: 20150415, end: 20150423
  4. HOVA [Concomitant]
     Active Substance: HERBALS\HOPS\VALERIAN
     Route: 048
     Dates: start: 20150428, end: 20150430
  5. IBUPROFEN. [Concomitant]
     Active Substance: IBUPROFEN
     Route: 048
     Dates: start: 20150426, end: 20150429
  6. TRITTICO RETARD [Concomitant]
     Active Substance: TRAZODONE HYDROCHLORIDE
     Dosage: DOSIS REDUCING
     Route: 048
     Dates: start: 20150401, end: 20150426
  7. HOVA [Concomitant]
     Active Substance: HERBALS\HOPS\VALERIAN
     Route: 048
     Dates: start: 20150423, end: 20150423
  8. HOVA [Concomitant]
     Active Substance: HERBALS\HOPS\VALERIAN
     Route: 048
     Dates: start: 20150425, end: 20150426
  9. IBUPROFEN. [Concomitant]
     Active Substance: IBUPROFEN
     Dates: start: 20150512, end: 20150513
  10. SERTRALINE [Suspect]
     Active Substance: SERTRALINE HYDROCHLORIDE
     Dosage: 50-100MG
     Route: 048
     Dates: start: 20150401, end: 20150414
  11. ABILIFY [Suspect]
     Active Substance: ARIPIPRAZOLE
     Route: 048
     Dates: start: 20150424, end: 20150429
  12. SERTRALINE [Suspect]
     Active Substance: SERTRALINE HYDROCHLORIDE
     Route: 048
     Dates: start: 20150424, end: 20150428
  13. ABILIFY [Suspect]
     Active Substance: ARIPIPRAZOLE
     Route: 048
     Dates: start: 20150430, end: 20150430

REACTIONS (3)
  - Pancreatitis [Recovered/Resolved]
  - Amylase increased [Recovered/Resolved]
  - Lipase increased [Recovered/Resolved]

NARRATIVE: CASE EVENT DATE: 20150427
